FAERS Safety Report 9852575 (Version 1)
Quarter: 2014Q1

REPORT INFORMATION
  Report Type: Spontaneous
  Country: FR (occurrence: FR)
  Receive Date: 20140129
  Receipt Date: 20140129
  Transmission Date: 20141002
  Serious: Yes (Hospitalization)
  Sender: FDA-Public Use
  Company Number: FR-BRISTOL-MYERS SQUIBB COMPANY-20078390

PATIENT
  Age: 50 Year
  Sex: Male

DRUGS (4)
  1. BARACLUDE [Suspect]
     Indication: HIV TEST POSITIVE
     Dates: start: 20121025
  2. BACTRIM FORTE TABLETS [Suspect]
     Indication: INFECTION
     Route: 048
     Dates: start: 201211, end: 20121112
  3. LYRICA [Suspect]
     Dates: start: 20121003
  4. KIVEXA [Suspect]
     Indication: HIV TEST POSITIVE
     Dates: start: 20121011

REACTIONS (1)
  - Dermatitis exfoliative [Recovered/Resolved]
